FAERS Safety Report 4580274-7 (Version None)
Quarter: 2005Q1

REPORT INFORMATION
  Report Type: 
  Country: None (occurrence: None)
  Receive Date: 20050214
  Receipt Date: 20041215
  Transmission Date: 20050727
  Serious: Yes (Hospitalization)
  Sender: FDA-Public Use
  Company Number: DE-GLAXOSMITHKLINE-D0045476A

PATIENT
  Sex: Female

DRUGS (2)
  1. ZYBAN [Suspect]
     Indication: SMOKING CESSATION THERAPY
     Dosage: 150MG SEE DOSAGE TEXT
     Route: 048
     Dates: start: 20020901
  2. AMITRIPTYLINE HCL [Concomitant]
     Dosage: 25MG UNKNOWN
     Route: 048
     Dates: start: 19960208

REACTIONS (11)
  - ANXIETY [None]
  - CARDIAC DISORDER [None]
  - DELUSION [None]
  - DYSPHAGIA [None]
  - DYSPNOEA [None]
  - HALLUCINATION, VISUAL [None]
  - HYPERVENTILATION [None]
  - HYPOAESTHESIA [None]
  - PANIC ATTACK [None]
  - SUICIDAL IDEATION [None]
  - THROAT TIGHTNESS [None]
